FAERS Safety Report 14291570 (Version 1)
Quarter: 2017Q4

REPORT INFORMATION
  Report Type: Spontaneous
  Country: GB (occurrence: GB)
  Receive Date: 20171215
  Receipt Date: 20171215
  Transmission Date: 20180321
  Serious: Yes (Other)
  Sender: FDA-Public Use
  Company Number: GB-OTSUKA-2017_021989

PATIENT
  Age: 52 Year
  Weight: 73 kg

DRUGS (12)
  1. JINARC [Suspect]
     Active Substance: TOLVAPTAN
     Dosage: 90 MILLIGRAM DAILY; QD (IN MORNING)
     Route: 048
     Dates: start: 20171006, end: 20171009
  2. JINARC [Suspect]
     Active Substance: TOLVAPTAN
     Dosage: 15 MILLIGRAM DAILY; QD (IN EVENING)
     Route: 048
     Dates: start: 20171012
  3. JINARC [Suspect]
     Active Substance: TOLVAPTAN
     Dosage: 45 MILLIGRAM DAILY; QD (IN MORNING)
     Route: 048
     Dates: start: 20171012
  4. RAMIPRIL. [Suspect]
     Active Substance: RAMIPRIL
     Indication: PRODUCT USED FOR UNKNOWN INDICATION
     Dosage: QD1
     Route: 065
  5. JINARC [Suspect]
     Active Substance: TOLVAPTAN
     Indication: PRODUCT USED FOR UNKNOWN INDICATION
     Dosage: 45 MILLIGRAM DAILY; QD (IN MORNING)
     Route: 048
     Dates: start: 20170811, end: 20170908
  6. PERINDOPRIL [Suspect]
     Active Substance: PERINDOPRIL
     Indication: PRODUCT USED FOR UNKNOWN INDICATION
     Dosage: 8 MILLIGRAM DAILY; QD
     Route: 048
     Dates: end: 20170910
  7. JINARC [Suspect]
     Active Substance: TOLVAPTAN
     Dosage: 15 MILLIGRAM DAILY; QD (IN EVENING)
     Route: 048
     Dates: start: 20170811, end: 20170908
  8. JINARC [Suspect]
     Active Substance: TOLVAPTAN
     Dosage: 30 MILLIGRAM DAILY; QD (IN EVENING)
     Route: 048
     Dates: start: 20170908, end: 20171006
  9. JINARC [Suspect]
     Active Substance: TOLVAPTAN
     Dosage: 30 MILLIGRAM DAILY; QD (IN EVENING)
     Route: 048
  10. JINARC [Suspect]
     Active Substance: TOLVAPTAN
     Dosage: 90 MILLIGRAM DAILY; QD (IN MORNING)
     Route: 048
  11. JINARC [Suspect]
     Active Substance: TOLVAPTAN
     Dosage: 60 MILLIGRAM DAILY; QD (IN MORNING)
     Route: 048
     Dates: start: 20170908, end: 20171006
  12. JINARC [Suspect]
     Active Substance: TOLVAPTAN
     Dosage: 30 MILLIGRAM DAILY; QD (IN EVENING)
     Route: 048
     Dates: start: 20171006, end: 20171009

REACTIONS (1)
  - Angioedema [Recovered/Resolved]

NARRATIVE: CASE EVENT DATE: 20171006
